FAERS Safety Report 15902461 (Version 1)
Quarter: 2019Q1

REPORT INFORMATION
  Report Type: Spontaneous
  Country: US (occurrence: US)
  Receive Date: 20190201
  Receipt Date: 20190201
  Transmission Date: 20190417
  Serious: No
  Sender: FDA-Public Use
  Company Number: US-GLAXOSMITHKLINE-US2019013521

PATIENT
  Sex: Female

DRUGS (2)
  1. CARVEDILOL TABLET [Suspect]
     Active Substance: CARVEDILOL
     Indication: HYPERTENSION
  2. CARVEDILOL TABLET [Suspect]
     Active Substance: CARVEDILOL
     Indication: PALPITATIONS
     Route: 048

REACTIONS (6)
  - Anxiety [Unknown]
  - Abdominal pain upper [Unknown]
  - Drug ineffective for unapproved indication [Unknown]
  - Dysgeusia [Unknown]
  - Dizziness [Unknown]
  - Product use in unapproved indication [Unknown]
